FAERS Safety Report 5172151-8 (Version None)
Quarter: 2006Q4

REPORT INFORMATION
  Report Type: 
  Country: None (occurrence: None)
  Receive Date: 20061213
  Receipt Date: 20061211
  Transmission Date: 20070319
  Serious: Yes (Other)
  Sender: FDA-Public Use
  Company Number: GB-BOEHRINGER INGELHEIM PHARMACEUTICALS, INC.-2006-UK-04963UK

PATIENT

DRUGS (6)
  1. SPIRIVA [Suspect]
     Route: 055
     Dates: start: 20060411, end: 20061128
  2. INSULIN [Concomitant]
     Indication: DIABETES MELLITUS
     Dosage: 40 IU
     Route: 058
  3. METHOTREXATE [Concomitant]
     Indication: RHEUMATOID ARTHRITIS
  4. SIMVASTATIN [Concomitant]
     Indication: BLOOD CHOLESTEROL INCREASED
     Route: 048
  5. TILDIEM [Concomitant]
     Indication: ANGINA PECTORIS
     Route: 048
  6. MODISAL [Concomitant]
     Indication: ANGINA PECTORIS
     Route: 048

REACTIONS (2)
  - MOUTH ULCERATION [None]
  - TOOTH DISCOLOURATION [None]
